FAERS Safety Report 4763974-5 (Version None)
Quarter: 2005Q3

REPORT INFORMATION
  Report Type: 
  Country: None (occurrence: None)
  Receive Date: 20050906
  Receipt Date: 20050609
  Transmission Date: 20060218
  Serious: No
  Sender: FDA-Public Use
  Company Number: 2005-BP-09686BP

PATIENT
  Age: 64 Year
  Sex: Male
  Weight: 62.9 kg

DRUGS (5)
  1. SPIRIVA [Suspect]
     Indication: CHRONIC OBSTRUCTIVE PULMONARY DISEASE
     Dosage: 18 MCG (18 MCG, QD), IH
     Route: 055
     Dates: start: 20050501
  2. SPIRIVA [Suspect]
  3. GUAIFENESIN (GUAIFENESIN) [Concomitant]
  4. ATROVENT [Concomitant]
  5. COMBIVENT (COMBIVENT   /GFR/) [Concomitant]

REACTIONS (1)
  - DRUG INEFFECTIVE [None]
